FAERS Safety Report 14683698 (Version 2)
Quarter: 2018Q3

REPORT INFORMATION
  Report Type: Report from Study
  Country: NL (occurrence: NL)
  Receive Date: 20180327
  Receipt Date: 20180830
  Transmission Date: 20181010
  Serious: Yes (Hospitalization)
  Sender: FDA-Public Use
  Company Number: NL-BAXTER-2018BAX009293

PATIENT
  Age: 40 Year
  Sex: Female
  Weight: 54 kg

DRUGS (8)
  1. METOCLOPRAMIDE. [Concomitant]
     Active Substance: METOCLOPRAMIDE
     Indication: NAUSEA
     Dosage: 10 MG, TID
     Route: 065
     Dates: start: 20170919
  2. LORAZEPAM. [Concomitant]
     Active Substance: LORAZEPAM
     Indication: FEELING OF RELAXATION
     Dosage: 0.5 MG, BID
     Route: 065
     Dates: start: 20170823
  3. LEE011 [Suspect]
     Active Substance: RIBOCICLIB
     Indication: BREAST CANCER
     Dosage: 600 MG
     Route: 048
     Dates: start: 20170911
  4. OXYCODONE HYDROCHLORIDE. [Suspect]
     Active Substance: OXYCODONE HYDROCHLORIDE
     Indication: BONE PAIN
     Dosage: 20 MG, MAX 6 TO 8 TIME A DAY
     Route: 048
     Dates: start: 20170915
  5. OXYCODONE HYDROCHLORIDE. [Suspect]
     Active Substance: OXYCODONE HYDROCHLORIDE
     Dosage: 80 MG, BID
     Route: 048
     Dates: start: 20170918, end: 20170918
  6. LETROZOLE. [Suspect]
     Active Substance: LETROZOLE
     Indication: BREAST CANCER
     Dosage: 2.5 MG
     Route: 048
     Dates: start: 20170911
  7. ONDANSETRON CLARIS 2 MG/ML OPLOSSING VOOR INJECTIE [Suspect]
     Active Substance: ONDANSETRON
     Indication: NAUSEA
     Dosage: 8 MG, TID
     Route: 048
     Dates: start: 20170922, end: 20170922
  8. OXYCODONE HYDROCHLORIDE. [Suspect]
     Active Substance: OXYCODONE HYDROCHLORIDE
     Dosage: 40 MG, BID, DOSE REDUCED
     Route: 048
     Dates: start: 20170925

REACTIONS (3)
  - Nausea [Recovered/Resolved]
  - Vomiting [Recovered/Resolved]
  - Constipation [Recovered/Resolved]

NARRATIVE: CASE EVENT DATE: 20170925
